FAERS Safety Report 4973089-9 (Version None)
Quarter: 2006Q2

REPORT INFORMATION
  Report Type: 
  Country: None (occurrence: None)
  Receive Date: 20060414
  Receipt Date: 20060403
  Transmission Date: 20061013
  Serious: Yes (Disabling)
  Sender: FDA-Public Use
  Company Number: RO-ROCHE-442824

PATIENT
  Age: 17 Year
  Sex: Female
  Weight: 56 kg

DRUGS (1)
  1. ROACCUTANE [Suspect]
     Indication: ACNE
     Route: 048
     Dates: start: 20060115, end: 20060315

REACTIONS (1)
  - HAEMATOCHEZIA [None]
